FAERS Safety Report 24296801 (Version 1)
Quarter: 2024Q3

REPORT INFORMATION
  Report Type: Spontaneous
  Country: PT (occurrence: PT)
  Receive Date: 20240909
  Receipt Date: 20240909
  Transmission Date: 20241017
  Serious: Yes (Life-Threatening, Hospitalization, Other)
  Sender: ACCORD
  Company Number: PT-EMA-DD-20240819-7482643-120017

PATIENT
  Age: 45 Year
  Sex: Female

DRUGS (5)
  1. LETROZOLE [Suspect]
     Active Substance: LETROZOLE
     Indication: Hormone receptor positive HER2 negative breast cancer
     Dosage: 2.5 MILLIGRAM, QD/FIRST-LINE THERAPY
     Dates: start: 202101, end: 202108
  2. GOSERELIN ACETATE [Suspect]
     Active Substance: GOSERELIN ACETATE
     Indication: Hormone receptor positive HER2 negative breast cancer
     Dosage: FIRST-LINE THERAPY
     Dates: start: 202101
  3. RIBOCICLIB [Suspect]
     Active Substance: RIBOCICLIB
     Indication: Hormone receptor positive HER2 negative breast cancer
     Dosage: 600 MG, QD/FIRST-LINE THERAPY
     Dates: start: 202101, end: 202107
  4. RIBOCICLIB [Suspect]
     Active Substance: RIBOCICLIB
     Indication: Hormone receptor positive HER2 negative breast cancer
     Dosage: 400 MG (REINITIATED RIBOCICLIB AT A LOWER DOSE) (400MG ID)
     Dates: start: 202110, end: 202110
  5. LETROZOLE [Suspect]
     Active Substance: LETROZOLE
     Indication: Hormone receptor positive HER2 negative breast cancer
     Dosage: 2.5 MG, QD (REINTRODUCED)
     Dates: start: 202109

REACTIONS (4)
  - Aspartate aminotransferase increased [Recovered/Resolved]
  - Hepatotoxicity [Recovered/Resolved]
  - Alanine aminotransferase increased [Recovered/Resolved]
  - Rebound effect [Recovering/Resolving]

NARRATIVE: CASE EVENT DATE: 20210701
